FAERS Safety Report 8124161-6 (Version None)
Quarter: 2012Q1

REPORT INFORMATION
  Report Type: 
  Country: None (occurrence: None)
  Receive Date: 20120209
  Receipt Date: 20120203
  Transmission Date: 20120608
  Serious: Yes (Hospitalization)
  Sender: FDA-Public Use
  Company Number: DE-B.I. PHARMACEUTICALS,INC./RIDGEFIELD-2011-DE-06579DE

PATIENT
  Sex: Female
  Weight: 54 kg

DRUGS (6)
  1. PRADAXA [Suspect]
     Dosage: 2 ANZ
     Route: 048
     Dates: start: 20111021, end: 20111023
  2. ASPIRIN [Concomitant]
     Indication: CEREBRAL INFARCTION
     Dosage: 100 MG
     Route: 048
     Dates: start: 20111007
  3. RAMIPRIL [Concomitant]
     Indication: HYPERTENSION
     Dosage: 2.5 MG
     Route: 048
     Dates: start: 20111007
  4. PRADAXA [Suspect]
     Indication: CEREBRAL ISCHAEMIA
     Dosage: 2 ANZ
     Route: 048
     Dates: start: 20111014, end: 20111021
  5. PANTOPRAZOLE [Concomitant]
     Indication: GASTRITIS PROPHYLAXIS
     Dosage: 1 ANZ
     Route: 048
     Dates: start: 20111007
  6. AMARYL [Concomitant]
     Dosage: 1.5 ANZ
     Route: 048

REACTIONS (7)
  - UPPER GASTROINTESTINAL HAEMORRHAGE [None]
  - PROTHROMBIN TIME PROLONGED [None]
  - HAEMOGLOBIN DECREASED [None]
  - PROTHROMBIN TIME ABNORMAL [None]
  - BLOOD CREATININE INCREASED [None]
  - MELAENA [None]
  - INTERNATIONAL NORMALISED RATIO DECREASED [None]
